FAERS Safety Report 5469118-9 (Version None)
Quarter: 2007Q3

REPORT INFORMATION
  Report Type: 
  Country: None (occurrence: None)
  Receive Date: 20070927
  Receipt Date: 20070920
  Transmission Date: 20080115
  Serious: Yes (Hospitalization)
  Sender: FDA-Public Use
  Company Number: PHMT2007CA01952

PATIENT
  Age: 84 Year
  Sex: Male

DRUGS (2)
  1. SINEMET [Concomitant]
  2. COMTAN [Suspect]
     Indication: PARKINSON'S DISEASE
     Dosage: 200MG TID

REACTIONS (2)
  - DYSPHAGIA [None]
  - FALL [None]
